FAERS Safety Report 24130766 (Version 1)
Quarter: 2024Q3

REPORT INFORMATION
  Report Type: Spontaneous
  Country: US (occurrence: US)
  Receive Date: 20240724
  Receipt Date: 20240724
  Transmission Date: 20241017
  Serious: Yes (Hospitalization, Other)
  Sender: AUROBINDO
  Company Number: US-AUROBINDO-AUR-APL-2024-036371

PATIENT
  Age: 6 Year
  Sex: Female

DRUGS (27)
  1. CARBOPLATIN [Suspect]
     Active Substance: CARBOPLATIN
     Indication: B-cell type acute leukaemia
     Dosage: UNK
     Route: 065
  2. CARBOPLATIN [Suspect]
     Active Substance: CARBOPLATIN
     Indication: Neuroblastoma
  3. CARBOPLATIN [Suspect]
     Active Substance: CARBOPLATIN
     Indication: Sarcoma
  4. CYCLOPHOSPHAMIDE [Suspect]
     Active Substance: CYCLOPHOSPHAMIDE
     Indication: B-cell type acute leukaemia
     Dosage: UNK
     Route: 065
  5. CYCLOPHOSPHAMIDE [Suspect]
     Active Substance: CYCLOPHOSPHAMIDE
     Indication: Neuroblastoma
  6. CYCLOPHOSPHAMIDE [Suspect]
     Active Substance: CYCLOPHOSPHAMIDE
     Indication: Sarcoma
  7. IRINOTECAN HYDROCHLORIDE [Suspect]
     Active Substance: IRINOTECAN HYDROCHLORIDE
     Indication: B-cell type acute leukaemia
     Dosage: UNK
     Route: 065
  8. IRINOTECAN HYDROCHLORIDE [Suspect]
     Active Substance: IRINOTECAN HYDROCHLORIDE
     Indication: Neuroblastoma
  9. IRINOTECAN HYDROCHLORIDE [Suspect]
     Active Substance: IRINOTECAN HYDROCHLORIDE
     Indication: Sarcoma
  10. MELPHALAN [Suspect]
     Active Substance: MELPHALAN
     Indication: B-cell type acute leukaemia
     Dosage: UNK
     Route: 065
  11. MELPHALAN [Suspect]
     Active Substance: MELPHALAN
     Indication: Neuroblastoma
  12. MELPHALAN [Suspect]
     Active Substance: MELPHALAN
     Indication: Sarcoma
  13. VINCRISTINE SULFATE [Suspect]
     Active Substance: VINCRISTINE SULFATE
     Indication: B-cell type acute leukaemia
     Dosage: UNK
     Route: 065
  14. VINCRISTINE SULFATE [Suspect]
     Active Substance: VINCRISTINE SULFATE
     Indication: Neuroblastoma
  15. VINCRISTINE SULFATE [Suspect]
     Active Substance: VINCRISTINE SULFATE
     Indication: Sarcoma
  16. ACCUTANE [Suspect]
     Active Substance: ISOTRETINOIN
     Indication: B-cell type acute leukaemia
     Dosage: UNK
     Route: 065
  17. ACCUTANE [Suspect]
     Active Substance: ISOTRETINOIN
     Indication: Neuroblastoma
  18. ACCUTANE [Suspect]
     Active Substance: ISOTRETINOIN
     Indication: Sarcoma
  19. DOXORUBICIN [Suspect]
     Active Substance: DOXORUBICIN
     Indication: B-cell type acute leukaemia
     Dosage: UNK
     Route: 065
  20. DOXORUBICIN [Suspect]
     Active Substance: DOXORUBICIN
     Indication: Neuroblastoma
  21. DOXORUBICIN [Suspect]
     Active Substance: DOXORUBICIN
     Indication: Sarcoma
  22. ETOPOSIDE [Suspect]
     Active Substance: ETOPOSIDE
     Indication: B-cell type acute leukaemia
     Dosage: UNK
     Route: 065
  23. ETOPOSIDE [Suspect]
     Active Substance: ETOPOSIDE
     Indication: Neuroblastoma
  24. ETOPOSIDE [Suspect]
     Active Substance: ETOPOSIDE
     Indication: Sarcoma
  25. CISPLATIN [Suspect]
     Active Substance: CISPLATIN
     Indication: B-cell type acute leukaemia
     Dosage: UNK
     Route: 065
  26. CISPLATIN [Suspect]
     Active Substance: CISPLATIN
     Indication: Sarcoma
  27. CISPLATIN [Suspect]
     Active Substance: CISPLATIN
     Indication: Neuroblastoma

REACTIONS (1)
  - Pleuroparenchymal fibroelastosis [Recovered/Resolved]
